FAERS Safety Report 10076052 (Version 2)
Quarter: 2014Q2

REPORT INFORMATION
  Report Type: Spontaneous
  Country: US (occurrence: None)
  Receive Date: 20140410
  Receipt Date: 20140428
  Transmission Date: 20141212
  Serious: Yes (Hospitalization, Other)
  Sender: FDA-Public Use
  Company Number: AUR-APL-2014-04138

PATIENT
  Age: 58 Year
  Sex: Female
  Weight: 107 kg

DRUGS (2)
  1. LISINOPRIL (LISINOPRIL) [Suspect]
     Indication: BLOOD PRESSURE
     Dosage: 80 MG (40 MG, 2 IN 1 D)
  2. LYRICA (PREGABALIN) [Suspect]
     Indication: FIBROMYALGIA
     Dosage: 300 MG (150 MG, 2 IN 1 D)
     Dates: start: 201403

REACTIONS (2)
  - Renal failure [None]
  - Bacterial infection [None]
